FAERS Safety Report 8508013-5 (Version None)
Quarter: 2012Q3

REPORT INFORMATION
  Report Type: 
  Country: None (occurrence: None)
  Receive Date: 20120713
  Receipt Date: 20120705
  Transmission Date: 20120928
  Serious: Yes (Other)
  Sender: FDA-Public Use
  Company Number: JP-ASTELLAS-2012JP006241

PATIENT
  Age: 66 Year
  Sex: Female

DRUGS (2)
  1. VESICARE [Suspect]
     Route: 048
  2. VESICARE [Suspect]
     Route: 048

REACTIONS (1)
  - ANOSMIA [None]
